FAERS Safety Report 4960497-5 (Version None)
Quarter: 2006Q2

REPORT INFORMATION
  Report Type: 
  Country: None (occurrence: None)
  Receive Date: 20060403
  Receipt Date: 20060323
  Transmission Date: 20061013
  Serious: Yes (Hospitalization, Other)
  Sender: FDA-Public Use
  Company Number: JP-JNJFOC-20060301700

PATIENT
  Sex: Male

DRUGS (6)
  1. DUROTEP [Suspect]
     Route: 062
  2. DUROTEP [Suspect]
     Indication: CANCER PAIN
     Route: 062
  3. EPTAZOCINE HYDROBROMIDE [Suspect]
     Indication: PAIN
     Route: 030
  4. DINOPROST [Suspect]
     Indication: ILEUS
     Route: 065
  5. FURSULTIAMINE HYDROCHLORIDE [Concomitant]
     Indication: ILEUS
     Route: 042
  6. PANTHENOL [Concomitant]
     Indication: ILEUS
     Route: 042

REACTIONS (2)
  - APPLICATION SITE PAIN [None]
  - RENAL IMPAIRMENT [None]
